FAERS Safety Report 20349296 (Version 1)
Quarter: 2022Q1

REPORT INFORMATION
  Report Type: Spontaneous
  Country: IT (occurrence: IT)
  Receive Date: 20220119
  Receipt Date: 20220119
  Transmission Date: 20220423
  Serious: Yes (Death, Other)
  Sender: FDA-Public Use
  Company Number: IT-SUN PHARMACEUTICAL INDUSTRIES LTD-2021RR-324267

PATIENT
  Age: 56 Year
  Sex: Female

DRUGS (10)
  1. LEVETIRACETAM [Suspect]
     Active Substance: LEVETIRACETAM
     Indication: Hepatic failure
     Dosage: 500 MGX2
     Route: 065
     Dates: start: 20191104
  2. OMEPRAZOLE [Suspect]
     Active Substance: OMEPRAZOLE
     Indication: Hepatic failure
     Dosage: 20 MGX2
     Route: 065
  3. DELORAZEPAM [Suspect]
     Active Substance: DELORAZEPAM
     Indication: Hepatic failure
     Dosage: 8 MILLIGRAM IN THE EVENING
     Route: 065
  4. METHYLPREDNISOLONE [Suspect]
     Active Substance: METHYLPREDNISOLONE
     Indication: Hepatotoxicity
     Dosage: 2 MILLIGRAM/KILOGRAM; DAILY DOSE 80 MGX2
     Route: 065
  5. TACROLIMUS [Suspect]
     Active Substance: TACROLIMUS
     Indication: Immunosuppression
     Dosage: 2 MILLIGRAM, DAILY
     Route: 065
     Dates: start: 20191211
  6. FUROSEMIDE [Suspect]
     Active Substance: FUROSEMIDE
     Indication: Hepatic failure
     Dosage: 20 MGX2
     Route: 065
  7. EUTHYROX [Suspect]
     Active Substance: LEVOTHYROXINE SODIUM
     Indication: Hepatic failure
     Dosage: 125 MICROGRAM, UNK
     Route: 065
  8. CETIRIZINE [Suspect]
     Active Substance: CETIRIZINE HYDROCHLORIDE
     Indication: Hepatic failure
     Dosage: 10 MILLIGRAM, 1 CAPSULE X2
     Route: 065
  9. MYCOPHENOLIC ACID [Suspect]
     Active Substance: MYCOPHENOLIC ACID
     Indication: Hepatic failure
     Dosage: 100 MILLIGRAM, BID
     Route: 065
     Dates: start: 201911
  10. PREDNISONE [Suspect]
     Active Substance: PREDNISONE
     Indication: Hepatotoxicity
     Dosage: 25 MILLIGRAM, TID, 1 CAPSULE
     Route: 048

REACTIONS (2)
  - Disease progression [Fatal]
  - Hepatic enzyme increased [Unknown]
